FAERS Safety Report 5608084-X (Version None)
Quarter: 2008Q1

REPORT INFORMATION
  Report Type: 
  Country: None (occurrence: None)
  Receive Date: 20080125
  Receipt Date: 20080123
  Transmission Date: 20080703
  Serious: Yes (Other)
  Sender: FDA-Public Use
  Company Number: 6040384

PATIENT
  Sex: Female

DRUGS (1)
  1. BISOPROLOL FUMARATE [Suspect]
     Indication: DRUG USE FOR UNKNOWN INDICATION
     Dosage: 1.25 MG (1.25 MG, 1 IN 1 D) ORAL
     Route: 048

REACTIONS (2)
  - EYE INFECTION [None]
  - HALLUCINATION [None]
